FAERS Safety Report 9245322 (Version 3)
Quarter: 2013Q4

REPORT INFORMATION
  Report Type: Spontaneous
  Country: US (occurrence: US)
  Receive Date: 20130422
  Receipt Date: 20131129
  Transmission Date: 20140711
  Serious: No
  Sender: FDA-Public Use
  Company Number: US-PFIZER INC-2013121215

PATIENT
  Age: 67 Year
  Sex: Male
  Weight: 90.7 kg

DRUGS (2)
  1. VIAGRA [Suspect]
     Indication: ERECTILE DYSFUNCTION
     Dosage: 50 MG, AS NEEDED
     Route: 048
     Dates: start: 201303
  2. VIAGRA [Suspect]
     Dosage: 100 MG (1 TABLET), EVERY DAY AS NEEDED
     Route: 048

REACTIONS (1)
  - Drug ineffective [Unknown]
